FAERS Safety Report 20372725 (Version 1)
Quarter: 2022Q1

REPORT INFORMATION
  Report Type: Report from Study
  Country: US (occurrence: US)
  Receive Date: 20220125
  Receipt Date: 20220125
  Transmission Date: 20220423
  Serious: Yes (Hospitalization, Other)
  Sender: FDA-Public Use
  Company Number: US-ABBVIE-22K-163-4245771-00

PATIENT
  Sex: Female

DRUGS (1)
  1. IMBRUVICA [Suspect]
     Active Substance: IBRUTINIB
     Indication: Chronic lymphocytic leukaemia
     Route: 048

REACTIONS (6)
  - Endotracheal intubation [Recovered/Resolved]
  - Cardiac arrest [Recovered/Resolved]
  - Hospitalisation [Recovering/Resolving]
  - Sepsis [Recovered/Resolved]
  - Ulcer haemorrhage [Not Recovered/Not Resolved]
  - Pneumonia [Recovered/Resolved]
